FAERS Safety Report 12476088 (Version 5)
Quarter: 2016Q4

REPORT INFORMATION
  Report Type: Report from Study
  Country: US (occurrence: US)
  Receive Date: 20160617
  Receipt Date: 20161117
  Transmission Date: 20170207
  Serious: Yes (Hospitalization, Other)
  Sender: FDA-Public Use
  Company Number: US-SA-2016SA109442

PATIENT
  Age: 47 Year
  Sex: Female

DRUGS (3)
  1. PREDNISONE. [Suspect]
     Active Substance: PREDNISONE
     Route: 065
  2. LEMTRADA [Suspect]
     Active Substance: ALEMTUZUMAB
     Indication: MULTIPLE SCLEROSIS
     Route: 041
     Dates: start: 20160523, end: 20160527
  3. PREDNISONE. [Suspect]
     Active Substance: PREDNISONE
     Route: 065

REACTIONS (16)
  - Depressed level of consciousness [Recovered/Resolved]
  - Urinary incontinence [Recovered/Resolved]
  - White blood cell count abnormal [Not Recovered/Not Resolved]
  - Immune system disorder [Recovering/Resolving]
  - Dehydration [Recovering/Resolving]
  - Vomiting [Recovered/Resolved]
  - Headache [Not Recovered/Not Resolved]
  - Multiple sclerosis relapse [Unknown]
  - Liver function test abnormal [Recovered/Resolved]
  - Thyroid function test abnormal [Recovered/Resolved]
  - Paralysis [Recovering/Resolving]
  - Asthenia [Unknown]
  - Pain [Not Recovered/Not Resolved]
  - Movement disorder [Recovering/Resolving]
  - T-lymphocyte count abnormal [Not Recovered/Not Resolved]
  - Fatigue [Not Recovered/Not Resolved]

NARRATIVE: CASE EVENT DATE: 2016
